FAERS Safety Report 4613601-2 (Version None)
Quarter: 2005Q1

REPORT INFORMATION
  Report Type: 
  Country: None (occurrence: None)
  Receive Date: 20050321
  Receipt Date: 20050307
  Transmission Date: 20050727
  Serious: Yes (Death, Hospitalization, Other)
  Sender: FDA-Public Use
  Company Number: CA-JNJFOC-20050303219

PATIENT
  Sex: Female
  Weight: 56.5 kg

DRUGS (4)
  1. DURAGESIC-100 [Suspect]
     Indication: CANCER PAIN
     Route: 062
  2. MOS [Suspect]
     Indication: CANCER PAIN
     Dosage: 20-30 MG
     Route: 049
  3. PACLITAXEL [Suspect]
     Indication: NON-SMALL CELL LUNG CANCER
     Dosage: 210 MG/M2, 1 IN 3 WEEKS, INTRAVENOUS
     Route: 042
  4. CARBOPLATIN [Suspect]
     Indication: NON-SMALL CELL LUNG CANCER
     Dosage: AUC 6, 1 IN 3 WEEKS, INTRAVENOUS
     Route: 042

REACTIONS (6)
  - ASTHENIA [None]
  - CLOSTRIDIUM COLITIS [None]
  - DELIRIUM [None]
  - DYSPNOEA [None]
  - NON-SMALL CELL LUNG CANCER [None]
  - WEIGHT DECREASED [None]
